FAERS Safety Report 10249721 (Version 1)
Quarter: 2014Q2

REPORT INFORMATION
  Report Type: Spontaneous
  Country: US (occurrence: US)
  Receive Date: 20140620
  Receipt Date: 20140620
  Transmission Date: 20141212
  Serious: No
  Sender: FDA-Public Use
  Company Number: US-BAYER-2014-091727

PATIENT
  Age: 13 Year
  Sex: Female

DRUGS (2)
  1. ALEVE TABLET [Suspect]
     Indication: HEADACHE
     Dosage: 2 DF, PRN
     Route: 048
  2. ALEVE TABLET [Suspect]
     Indication: HEADACHE
     Dosage: 4 DF, WITHIN FOUR HOURS
     Route: 048
     Dates: start: 20140617

REACTIONS (3)
  - Drug ineffective [None]
  - Inappropriate schedule of drug administration [None]
  - Intentional product misuse [None]
